FAERS Safety Report 15463372 (Version 1)
Quarter: 2018Q4

REPORT INFORMATION
  Report Type: Spontaneous
  Country: CH (occurrence: CH)
  Receive Date: 20181004
  Receipt Date: 20181004
  Transmission Date: 20190204
  Serious: Yes (Life-Threatening, Hospitalization)
  Sender: FDA-Public Use
  Company Number: CH-BAYER-2018-180193

PATIENT
  Age: 65 Year
  Sex: Male

DRUGS (11)
  1. OLFEN [Suspect]
     Active Substance: DICLOFENAC SODIUM
     Dosage: 75 MG, PRN; 75MG IN RESERVE JUL-2018 DURING SOME ...
     Route: 048
     Dates: start: 201808, end: 201808
  2. LISINOPRIL. [Suspect]
     Active Substance: LISINOPRIL
     Dosage: 20 MG, OM; 20MG 1-0-0, ORAL INTAKE ...;
     Route: 048
     Dates: end: 20180731
  3. PANTOPRAZOLE [Concomitant]
     Active Substance: PANTOPRAZOLE
     Dosage: 40 MG, UNK; 40MG IN RESERVE ORA ...;
     Route: 048
  4. TORASEMID [Suspect]
     Active Substance: TORSEMIDE
     Dosage: 5 MG, ORAL INTAKE;
     Route: 048
     Dates: end: 20180831
  5. EPLERENONE. [Suspect]
     Active Substance: EPLERENONE
     Dosage: 25 MG, OM; 25MG 1-0-0, ORAL ...;
     Route: 048
     Dates: end: 20180731
  6. EZETROL [Concomitant]
     Active Substance: EZETIMIBE
     Dosage: 10 MG, QD; ORAL INTAKE SINCE UNKNOWN DATE ...;
     Route: 048
  7. ASPIRIN CARDIO 100 MG [Suspect]
     Active Substance: ASPIRIN
     Dosage: ROUTE:048ASPIRIN CARDIO? (ACETYLSALICYLS?URE) 100 MG 1-0-0, ORAL, SINCE UN...
     Route: 048
  8. MARCOUMAR [Concomitant]
     Active Substance: PHENPROCOUMON
     Dosage: 3 MG, UNK; 3MG ACCORDING TO INR, ORAL INTAKE;
     Route: 048
  9. LISINOPRIL. [Suspect]
     Active Substance: LISINOPRIL
     Dosage: 10 MG, UNK; ;  OM; 20MG 1-0-0, ORAL INTAKE ...;
     Route: 048
     Dates: start: 20180804
  10. AMIODARON [Suspect]
     Active Substance: AMIODARONE
     Dosage: 200 MG, OM; 200MG ORAL 1-0-0 ...;
     Route: 048
  11. ATORVA [Concomitant]
     Dosage: 40 MG, QD; 80MG 0-0-1/2 IF NOT OTHERWISE NOTED;
     Route: 048

REACTIONS (3)
  - Acute kidney injury [Recovering/Resolving]
  - Drug interaction [Recovering/Resolving]
  - Hyperkalaemia [Recovering/Resolving]

NARRATIVE: CASE EVENT DATE: 201807
